FAERS Safety Report 21070044 (Version 23)
Quarter: 2024Q4

REPORT INFORMATION
  Report Type: Spontaneous
  Country: US (occurrence: US)
  Receive Date: 20220712
  Receipt Date: 20241220
  Transmission Date: 20250115
  Serious: Yes (Other)
  Sender: PFIZER
  Company Number: US-PFIZER INC-202200949586

PATIENT
  Age: 68 Year
  Sex: Female

DRUGS (4)
  1. IBRANCE [Suspect]
     Active Substance: PALBOCICLIB
     Indication: Breast cancer stage IV
     Dosage: 125 MG, CYCLIC (3 WEEKS ON AND 1 WEEK OFF; 1 TABLET DAILY, 3 WEEKS ON AND 7 DAYS OFF)
     Dates: start: 2018
  2. IBRANCE [Suspect]
     Active Substance: PALBOCICLIB
     Dosage: 125 MG, CYCLIC (TAKE 1 TABLET DAILY FOR 21 DAYS ON THEN 7 DAYS OFF)
     Route: 048
     Dates: start: 202010
  3. IBRANCE [Suspect]
     Active Substance: PALBOCICLIB
     Dosage: 125 MG
     Dates: start: 20230410
  4. IBRANCE [Suspect]
     Active Substance: PALBOCICLIB
     Dosage: 125 MG, CYCLIC (1-21 DAYS ON, 7 DAYS OFF )
     Route: 048

REACTIONS (10)
  - Second primary malignancy [Unknown]
  - Lung neoplasm malignant [Unknown]
  - Cerebrovascular accident [Recovering/Resolving]
  - Poor quality product administered [Unknown]
  - Cognitive disorder [Unknown]
  - Stress [Unknown]
  - Tumour marker increased [Unknown]
  - Product temperature excursion issue [Unknown]
  - Brain fog [Unknown]
  - Confusional state [Unknown]

NARRATIVE: CASE EVENT DATE: 20241101
